FAERS Safety Report 14679819 (Version 2)
Quarter: 2018Q4

REPORT INFORMATION
  Report Type: Spontaneous
  Country: US (occurrence: US)
  Receive Date: 20180326
  Receipt Date: 20180918
  Transmission Date: 20190204
  Serious: No
  Sender: FDA-Public Use
  Company Number: US-MYLANLABS-2018M1015610

PATIENT
  Sex: Female

DRUGS (12)
  1. SINGULAIR [Concomitant]
     Active Substance: MONTELUKAST SODIUM
     Indication: PRODUCT USED FOR UNKNOWN INDICATION
     Dosage: 10 MG, QD, NIGHT
  2. PHENERGAN [Concomitant]
     Active Substance: PROMETHAZINE HYDROCHLORIDE
     Indication: PRODUCT USED FOR UNKNOWN INDICATION
     Dosage: UNK, QID
  3. NORCO [Concomitant]
     Active Substance: ACETAMINOPHEN\HYDROCODONE BITARTRATE
     Indication: PRODUCT USED FOR UNKNOWN INDICATION
     Dosage: UNK UNK, BID
  4. TRAZODONE [Concomitant]
     Active Substance: TRAZODONE HYDROCHLORIDE
     Indication: PRODUCT USED FOR UNKNOWN INDICATION
     Dosage: NIGHT
  5. METOLAZONE. [Suspect]
     Active Substance: METOLAZONE
     Indication: PRODUCT USED FOR UNKNOWN INDICATION
     Dosage: 2.5 MG, QW
  6. GABAPENTIN. [Concomitant]
     Active Substance: GABAPENTIN
     Indication: PAIN IN EXTREMITY
  7. POTASSIUM [Concomitant]
     Active Substance: POTASSIUM
     Indication: PRODUCT USED FOR UNKNOWN INDICATION
     Dosage: 20 MEQ, QD
  8. TORSEMIDE. [Suspect]
     Active Substance: TORSEMIDE
     Indication: PRODUCT USED FOR UNKNOWN INDICATION
     Dosage: 10 MG, QD
  9. LOSARTAN POTASSSIUM [Concomitant]
     Indication: PRODUCT USED FOR UNKNOWN INDICATION
     Dosage: UNK UNK, QD
  10. GABAPENTIN. [Concomitant]
     Active Substance: GABAPENTIN
     Indication: FIBROMYALGIA
     Dosage: 300, UNKNOWN UNIT, TID
     Dates: start: 20171003, end: 20171031
  11. GABAPENTIN. [Concomitant]
     Active Substance: GABAPENTIN
     Indication: BACK PAIN
     Dosage: 600, UNKNOWN UNIT, BID
     Dates: start: 20171101, end: 201712
  12. TIZANIDINE. [Concomitant]
     Active Substance: TIZANIDINE
     Indication: PRODUCT USED FOR UNKNOWN INDICATION
     Dosage: UNK, QID

REACTIONS (1)
  - Electrolyte depletion [Unknown]
